FAERS Safety Report 6528896-8 (Version None)
Quarter: 2009Q4

REPORT INFORMATION
  Report Type: 
  Country: None (occurrence: None)
  Receive Date: 20091223
  Receipt Date: 20091207
  Transmission Date: 20100525
  Serious: No
  Sender: FDA-Public Use
  Company Number: APP200900894

PATIENT
  Age: 21 Day
  Sex: Female

DRUGS (4)
  1. PYRIDOXINE HYDROCHLORIDE [Suspect]
     Indication: CONVULSION IN CHILDHOOD
     Dosage: 100 MG, INTRAVENOUS
     Route: 042
  2. PHENYTOIN [Concomitant]
  3. CLONAZEPAM [Concomitant]
  4. PHENOBARBITAL TAB [Concomitant]

REACTIONS (3)
  - APNOEA [None]
  - BRADYCARDIA [None]
  - HYPOTENSION [None]
